FAERS Safety Report 4591440-9 (Version None)
Quarter: 2005Q1

REPORT INFORMATION
  Report Type: 
  Country: None (occurrence: None)
  Receive Date: 20050225
  Receipt Date: 20050223
  Transmission Date: 20050727
  Serious: Yes (Death)
  Sender: FDA-Public Use
  Company Number: PHBS2005JP02784

PATIENT
  Age: 61 Year
  Sex: Female

DRUGS (4)
  1. CEFZON [Suspect]
     Indication: TOOTHACHE
     Route: 048
     Dates: start: 20050130, end: 20050130
  2. CEFZON [Suspect]
     Route: 048
     Dates: start: 20050218, end: 20050218
  3. VOLTAREN [Suspect]
     Indication: TOOTHACHE
     Route: 048
     Dates: start: 20050130, end: 20050130
  4. VOLTAREN [Suspect]
     Route: 048
     Dates: start: 20050218, end: 20050218

REACTIONS (1)
  - ANAPHYLACTIC SHOCK [None]
